FAERS Safety Report 5844963-6 (Version None)
Quarter: 2008Q3

REPORT INFORMATION
  Report Type: 
  Country: None (occurrence: None)
  Receive Date: 20080813
  Receipt Date: 20080813
  Transmission Date: 20090109
  Serious: Yes (Death, Hospitalization, Other)
  Sender: FDA-Public Use
  Company Number: None

PATIENT
  Sex: Female

DRUGS (11)
  1. REVLIMID [Suspect]
     Indication: AMYLOIDOSIS
     Dosage: 15MG DAILY 21D/28D ORAL
     Route: 048
  2. ODANSETRON [Concomitant]
  3. VICODIN [Concomitant]
  4. METHOCARBAMOL [Concomitant]
  5. LASIX [Concomitant]
  6. K-TAB [Concomitant]
  7. DOCUSATE SODIUM [Concomitant]
  8. LEVOTHROID [Concomitant]
  9. METOPROLOL [Concomitant]
  10. OMEPRAZOLE [Concomitant]
  11. ISORDIL [Concomitant]

REACTIONS (4)
  - CARDIAC FAILURE CONGESTIVE [None]
  - DISEASE PROGRESSION [None]
  - RASH [None]
  - RENAL DISORDER [None]
